FAERS Safety Report 8208429-0 (Version None)
Quarter: 2012Q1

REPORT INFORMATION
  Report Type: 
  Country: None (occurrence: None)
  Receive Date: 20120314
  Receipt Date: 20120308
  Transmission Date: 20120608
  Serious: Yes (Other)
  Sender: FDA-Public Use
  Company Number: JP-TEVA-2011001622

PATIENT
  Age: 71 Year
  Sex: Male

DRUGS (12)
  1. SENNOSIDE [Concomitant]
     Dates: start: 20101218, end: 20101220
  2. METOCLOPRAMIDE [Concomitant]
     Dates: start: 20101221, end: 20101221
  3. TREANDA [Suspect]
     Indication: MANTLE CELL LYMPHOMA
     Route: 042
     Dates: start: 20101215, end: 20101216
  4. TREANDA [Suspect]
     Route: 042
     Dates: start: 20110112, end: 20110113
  5. OXYCODONE HCL [Concomitant]
     Dates: start: 20101221, end: 20101221
  6. DEXAMETHASONE SODIUM PHOSPHATE [Concomitant]
     Dates: start: 20101216, end: 20101216
  7. SULFAMETHOXAZOLE AND TRIMETHOPRIM [Concomitant]
  8. HEPARIN SODIUM [Concomitant]
     Dates: start: 20110131, end: 20110209
  9. FK [Concomitant]
  10. VALACYCLOVIR HYDROCHLORIDE [Concomitant]
  11. GRANISETRON HCL [Concomitant]
  12. FILGRASTIM [Concomitant]
     Dates: start: 20101220, end: 20110130

REACTIONS (6)
  - LEUKOPENIA [None]
  - FEBRILE NEUTROPENIA [None]
  - VOMITING [None]
  - LYMPHOCYTE COUNT DECREASED [None]
  - C-REACTIVE PROTEIN INCREASED [None]
  - PANCYTOPENIA [None]
